FAERS Safety Report 17169033 (Version 1)
Quarter: 2019Q4

REPORT INFORMATION
  Report Type: Spontaneous
  Country: US (occurrence: US)
  Receive Date: 20191126
  Receipt Date: 20191126
  Transmission Date: 20200122
  Serious: Yes (Disabling)
  Sender: FDA-Public Use
  Company Number: None

PATIENT
  Age: 70 Year
  Sex: Male
  Weight: 70.6 kg

DRUGS (2)
  1. VANCOMYCIN [Suspect]
     Active Substance: VANCOMYCIN
     Indication: LOCALISED INFECTION
     Dates: start: 20190612, end: 20190614
  2. VANCOMYCIN [Suspect]
     Active Substance: VANCOMYCIN
     Indication: NECROSIS
     Dates: start: 20190612, end: 20190614

REACTIONS (3)
  - Renal impairment [None]
  - Dialysis [None]
  - Blood creatinine increased [None]

NARRATIVE: CASE EVENT DATE: 20190614
